FAERS Safety Report 10500893 (Version 1)
Quarter: 2014Q4

REPORT INFORMATION
  Report Type: Spontaneous
  Country: US (occurrence: US)
  Receive Date: 20141007
  Receipt Date: 20141007
  Transmission Date: 20150528
  Serious: Yes (Other)
  Sender: FDA-Public Use
  Company Number: US-BIOGENIDEC-2014BI101780

PATIENT
  Age: 66 Year
  Sex: Male

DRUGS (11)
  1. ASPIRIN. [Concomitant]
     Active Substance: ASPIRIN
  2. KLOR CON [Concomitant]
  3. MAGNESIUM [Concomitant]
     Active Substance: MAGNESIUM
  4. METHYLPHENIDATE ER [Concomitant]
     Active Substance: METHYLPHENIDATE
  5. TECFIDERA [Suspect]
     Active Substance: DIMETHYL FUMARATE
     Indication: MULTIPLE SCLEROSIS
     Route: 048
  6. MILK THISTLE [Concomitant]
     Active Substance: MILK THISTLE
  7. CITALOPRAM [Concomitant]
     Active Substance: CITALOPRAM HYDROBROMIDE
  8. BACLOFEN. [Concomitant]
     Active Substance: BACLOFEN
  9. MORPHINE SULFATE. [Concomitant]
     Active Substance: MORPHINE SULFATE
  10. CHLORTHALIDONE. [Concomitant]
     Active Substance: CHLORTHALIDONE
  11. ALEVE [Concomitant]
     Active Substance: NAPROXEN SODIUM

REACTIONS (1)
  - Prostate cancer recurrent [Unknown]

NARRATIVE: CASE EVENT DATE: 201409
